FAERS Safety Report 8231487-4 (Version None)
Quarter: 2012Q1

REPORT INFORMATION
  Report Type: 
  Country: None (occurrence: None)
  Receive Date: 20120323
  Receipt Date: 20120313
  Transmission Date: 20120608
  Serious: Yes (Hospitalization, Other)
  Sender: FDA-Public Use
  Company Number: PHHY2012JP023507

PATIENT
  Sex: Male
  Weight: 55 kg

DRUGS (8)
  1. DOXAZOSIN MESYLATE [Concomitant]
     Indication: HYPERTENSION
     Dosage: 2 MG, UNK
     Route: 048
  2. AMLODIPINE BESYLATE AND VALSARTAN [Suspect]
     Indication: HYPERTENSION
     Dosage: 1 DF, DAILY
     Route: 048
     Dates: start: 20100927, end: 20110406
  3. SENNA LEAF [Concomitant]
     Dosage: 3 DF, UNK
     Route: 048
  4. BANAN [Concomitant]
     Dosage: 100 MG, UNK
     Route: 048
     Dates: start: 20100924, end: 20100928
  5. FLUVOXAMINE MALEATE [Concomitant]
     Dosage: 25 MG, UNK
     Route: 048
     Dates: end: 20101014
  6. LENDORMIN [Concomitant]
     Dosage: 0.25 MG, UNK
     Route: 048
  7. CALCIUM CARBONATE [Concomitant]
     Dosage: 5 G, UNK
     Route: 048
  8. ADALAT CC [Concomitant]
     Indication: HYPERTENSION
     Dosage: 40 MG, UNK
     Route: 048
     Dates: end: 20101104

REACTIONS (5)
  - BACK PAIN [None]
  - BLOOD PRESSURE DIASTOLIC DECREASED [None]
  - BLOOD PRESSURE INADEQUATELY CONTROLLED [None]
  - PARALYSIS [None]
  - ASTHENIA [None]
